FAERS Safety Report 8610367 (Version 2)
Quarter: 2012Q4

REPORT INFORMATION
  Report Type: 
  Country: DK (occurrence: DK)
  Receive Date: 20120612
  Receipt Date: 20121227
  Transmission Date: 20130627
  Serious: Yes (Hospitalization)
  Sender: FDA-Public Use
  Company Number: DK-ASTRAZENECA-2012SE38367

PATIENT
  Age: 62 Year
  Sex: Male

DRUGS (5)
  1. SELOZOK [Suspect]
     Indication: ARRHYTHMIA
     Route: 048
  2. SELOZOK [Suspect]
     Indication: ARRHYTHMIA
     Dosage: prescribed 200 mg daily
     Route: 048
  3. SELOZOK [Suspect]
     Indication: ARRHYTHMIA
     Dosage: 2x200 mg and 1x50 mg
     Route: 048
  4. NORVASC [Concomitant]
     Indication: HYPERTENSION
  5. CORDARONE [Concomitant]

REACTIONS (4)
  - Accidental overdose [Unknown]
  - Poisoning [Unknown]
  - Bradycardia [Unknown]
  - Cardiac disorder [Unknown]
